FAERS Safety Report 17118477 (Version 1)
Quarter: 2019Q4

REPORT INFORMATION
  Report Type: Spontaneous
  Country: DK (occurrence: DK)
  Receive Date: 20191205
  Receipt Date: 20191205
  Transmission Date: 20200122
  Serious: Yes (Disabling)
  Sender: FDA-Public Use
  Company Number: DK-009507513-1912DNK001258

PATIENT
  Age: 28 Year
  Sex: Male

DRUGS (6)
  1. PREDNISOLONE. [Suspect]
     Active Substance: PREDNISOLONE
     Indication: NEUROSARCOIDOSIS
     Dosage: STRENGTH: UNKNOWN, INITIALLY 85 MILLIGRAM (MG). MAY-2015: 15 MG. SEPTEMBER 2015: 10 MG. JANUARY 2017
     Route: 048
     Dates: start: 20140901
  2. UNIKALK FORTE [Concomitant]
     Indication: OSTEOPOROSIS PROPHYLAXIS
     Dosage: STRENGTH: UNKNOWN. DOSE: UNKNOWN
     Route: 048
     Dates: start: 20140901, end: 20150529
  3. VITAMIN D (UNSPECIFIED) [Concomitant]
     Active Substance: VITAMIN D NOS
     Indication: OSTEOPOROSIS
     Dosage: 20 MICROGRAM, QD
     Route: 048
     Dates: start: 20160127, end: 20180122
  4. METHOTREXATE. [Concomitant]
     Active Substance: METHOTREXATE
     Indication: NEUROSARCOIDOSIS
     Dosage: STRENGTH: UNKNOWN. DOSE: UNKNOWN
     Dates: start: 2014, end: 20171110
  5. IMUREL [Concomitant]
     Active Substance: AZATHIOPRINE SODIUM
     Indication: SENSORY DISTURBANCE
     Dosage: STRENGTH: UNKNOWN. DOSE: UNKNOWN
     Route: 048
     Dates: start: 20141119, end: 2014
  6. ALENDRONATE SODIUM. [Suspect]
     Active Substance: ALENDRONATE SODIUM
     Indication: OSTEOPOROSIS
     Dosage: 70 MILLIGRAM, QD
     Route: 048
     Dates: start: 20160309

REACTIONS (5)
  - Osteonecrosis [Unknown]
  - Hip arthroplasty [Recovered/Resolved]
  - Pain in extremity [Not Recovered/Not Resolved]
  - Arthralgia [Not Recovered/Not Resolved]
  - Tenderness [Not Recovered/Not Resolved]

NARRATIVE: CASE EVENT DATE: 2017
